FAERS Safety Report 6116719-0 (Version None)
Quarter: 2009Q1

REPORT INFORMATION
  Report Type: 
  Country: None (occurrence: None)
  Receive Date: 20090314
  Receipt Date: 20081223
  Transmission Date: 20090719
  Serious: No
  Sender: FDA-Public Use
  Company Number: US-ABBOTT-08P-163-0494744-00

PATIENT
  Sex: Female
  Weight: 79.45 kg

DRUGS (11)
  1. HUMIRA [Suspect]
     Indication: CROHN'S DISEASE
     Route: 058
     Dates: start: 20081001
  2. HUMIRA [Suspect]
     Indication: ARTHRITIS
  3. LOTREL [Concomitant]
     Indication: HYPERTENSION
     Dosage: 5/10 MG QD
     Route: 048
  4. DYAZIDE [Concomitant]
     Indication: HYPERTENSION
     Dosage: 37.5/? UNSURE
     Route: 048
  5. ACIPHEX [Concomitant]
     Indication: GASTROOESOPHAGEAL REFLUX DISEASE
     Route: 048
  6. PENTASA [Concomitant]
     Indication: CROHN'S DISEASE
     Route: 048
  7. XYZAL [Concomitant]
     Indication: SEASONAL ALLERGY
     Route: 048
  8. ASTELIN [Concomitant]
     Indication: SEASONAL ALLERGY
     Route: 045
  9. MULTI-VITAMIN [Concomitant]
     Indication: VITAMIN SUPPLEMENTATION
     Route: 048
  10. VITAMIN D [Concomitant]
     Indication: VITAMIN SUPPLEMENTATION
     Route: 048
  11. TUMS [Concomitant]
     Indication: VITAMIN SUPPLEMENTATION
     Route: 048

REACTIONS (2)
  - HEADACHE [None]
  - NAUSEA [None]
